FAERS Safety Report 10890514 (Version 5)
Quarter: 2015Q2

REPORT INFORMATION
  Report Type: Report from Study
  Country: JP (occurrence: JP)
  Receive Date: 20150305
  Receipt Date: 20150619
  Transmission Date: 20150821
  Serious: Yes (Hospitalization)
  Sender: FDA-Public Use
  Company Number: JP-009507513-1503JPN000183

PATIENT
  Age: 91 Year
  Sex: Female

DRUGS (8)
  1. DIAZOXIDE [Suspect]
     Active Substance: DIAZOXIDE
     Dosage: 50 MG, BID
     Route: 048
     Dates: start: 20150131, end: 20150205
  2. MICARDIS [Concomitant]
     Active Substance: TELMISARTAN
     Indication: HYPERTENSION
     Dosage: 40 MG, QD,  FORMULATION ^POR^, DIVIDED DOSE FREQUENCY UNKNOWN
     Route: 048
  3. DIAZOXIDE [Suspect]
     Active Substance: DIAZOXIDE
     Dosage: 25 MG, TID
     Route: 048
     Dates: start: 20150127, end: 20150130
  4. SANDOSTATIN [Concomitant]
     Active Substance: OCTREOTIDE ACETATE
     Dosage: DAILY DOSE UNKNOWN
     Route: 065
  5. GASTER [Concomitant]
     Active Substance: FAMOTIDINE
     Indication: CHRONIC GASTRITIS
     Dosage: 10 MG, QD, FORMULATION ^POR^(DIVIDED DOSE FREQUENCY UNKNOWN)
     Route: 048
  6. AMLODIN (AMLODIPINE BESYLATE) [Concomitant]
     Active Substance: AMLODIPINE BESYLATE
     Indication: HYPERTENSION
     Dosage: 5 MG, QD  FORMULATION ^POR^,(DIVIDED DOSE FREQUENCY UNKNOWN)
     Route: 048
  7. ASCATE [Concomitant]
     Indication: HYPOKALAEMIA
     Dosage: 2.7 G, QD,  FORMULATION ^POR^ (DIVIDED DOSE FREQUENCY UNKNOWN)
     Route: 048
  8. DIAZOXIDE [Suspect]
     Active Substance: DIAZOXIDE
     Indication: HYPOGLYCAEMIA
     Dosage: 50 MG, TID
     Route: 048
     Dates: start: 20150116, end: 20150119

REACTIONS (2)
  - Cardiac failure [Recovered/Resolved]
  - Cardiac failure [Recovered/Resolved]

NARRATIVE: CASE EVENT DATE: 20150119
